FAERS Safety Report 6058401-4 (Version None)
Quarter: 2009Q1

REPORT INFORMATION
  Report Type: 
  Country: None (occurrence: None)
  Receive Date: 20090127
  Receipt Date: 20090113
  Transmission Date: 20090719
  Serious: Yes (Other)
  Sender: FDA-Public Use
  Company Number: DSJ-2008-12753

PATIENT
  Age: 59 Year
  Sex: Female
  Weight: 45 kg

DRUGS (4)
  1. OLMESARTAN MEDOXOMIL [Suspect]
     Indication: HYPERTENSION
     Dosage: 20 MG (20 MG, 1 IN 1 D), PER ORAL
     Route: 048
     Dates: start: 20080801, end: 20081021
  2. LOXOPROFEN SODIUM (LOXOPROFEN SODIUM) (TABLET) (LOXOPROFEN SODIUM) [Concomitant]
  3. NONNERV (ETIZOLAM) (TABLET) (ETIZOLAM) [Concomitant]
  4. FLOMOX (CEFCAPENE PIVOXIL HYDROCHLORIDE) (TABLET) (CEFCAPENE PIVOXIL H [Concomitant]

REACTIONS (3)
  - DENTAL CARIES [None]
  - NAUSEA [None]
  - THROMBOCYTOPENIA [None]
